FAERS Safety Report 21978821 (Version 1)
Quarter: 2023Q1

REPORT INFORMATION
  Report Type: Spontaneous
  Country: US (occurrence: None)
  Receive Date: 20230208
  Receipt Date: 20230208
  Transmission Date: 20230418
  Serious: Yes (Other)
  Sender: FDA-Public Use
  Company Number: None

PATIENT
  Age: 61 Year
  Sex: Female

DRUGS (1)
  1. FINGOLIMOD [Suspect]
     Active Substance: FINGOLIMOD
     Dosage: FREQUENCY : DAILY;?
     Route: 048

REACTIONS (2)
  - Malignant melanoma [None]
  - Therapy cessation [None]

NARRATIVE: CASE EVENT DATE: 20221001
